FAERS Safety Report 6184244-7 (Version None)
Quarter: 2009Q2

REPORT INFORMATION
  Report Type: 
  Country: None (occurrence: None)
  Receive Date: 20090508
  Receipt Date: 20090507
  Transmission Date: 20091009
  Serious: Yes (Death, Other)
  Sender: FDA-Public Use
  Company Number: PHEH2008US04764

PATIENT
  Sex: Male

DRUGS (4)
  1. ZOMETA [Suspect]
     Dosage: MONTHLY
  2. LIPITOR [Concomitant]
  3. ZOLOFT [Concomitant]
  4. COUMADIN [Concomitant]

REACTIONS (23)
  - ABSCESS [None]
  - ANHEDONIA [None]
  - ANXIETY [None]
  - ASTHENIA [None]
  - BACK PAIN [None]
  - DEPRESSED MOOD [None]
  - DEPRESSION [None]
  - HYPERLIPIDAEMIA [None]
  - HYPOAESTHESIA [None]
  - INJURY [None]
  - INSOMNIA [None]
  - LUNG NEOPLASM MALIGNANT [None]
  - MUSCULOSKELETAL DISCOMFORT [None]
  - MUSCULOSKELETAL PAIN [None]
  - OSTEOARTHRITIS [None]
  - OSTEONECROSIS [None]
  - PAIN [None]
  - PAIN IN JAW [None]
  - SUPERIOR VENA CAVAL OCCLUSION [None]
  - SWELLING [None]
  - TOOTH EXTRACTION [None]
  - TOOTHACHE [None]
  - URINARY RETENTION [None]
